FAERS Safety Report 17759134 (Version 2)
Quarter: 2020Q2

REPORT INFORMATION
  Report Type: Report from Study
  Country: BW (occurrence: BW)
  Receive Date: 20200508
  Receipt Date: 20200516
  Transmission Date: 20200714
  Serious: Yes (Death, Congenital Anomaly, Other)
  Sender: FDA-Public Use
  Company Number: BW-AUROBINDO-AUR-APL-2020-024122

PATIENT

DRUGS (4)
  1. ABACAVIR. [Suspect]
     Active Substance: ABACAVIR
     Indication: PRODUCT USED FOR UNKNOWN INDICATION
     Dosage: UNK, (FIRST TRIMESTER)
     Route: 064
  2. LAMIVUDINE. [Suspect]
     Active Substance: LAMIVUDINE
     Indication: PRODUCT USED FOR UNKNOWN INDICATION
     Dosage: UNK, (FIRST TRIMESTER)
     Route: 064
  3. EFAVIRENZ. [Suspect]
     Active Substance: EFAVIRENZ
     Indication: PRODUCT USED FOR UNKNOWN INDICATION
     Dosage: UNK, (SECOND TRIMESTER, BEGAN AT 22 WEEK)
     Route: 064
  4. TIVICAY [Suspect]
     Active Substance: DOLUTEGRAVIR SODIUM
     Indication: PRODUCT USED FOR UNKNOWN INDICATION
     Dosage: UNK, (FIRST TRIMESTER, ENDED ON 22 WEEK)
     Route: 064

REACTIONS (4)
  - Foetal exposure during pregnancy [Unknown]
  - Meningomyelocele [Unknown]
  - Hydrocephalus [Unknown]
  - Stillbirth [Fatal]
